FAERS Safety Report 7654474-3 (Version None)
Quarter: 2011Q3

REPORT INFORMATION
  Report Type: 
  Country: None (occurrence: None)
  Receive Date: 20110803
  Receipt Date: 20110728
  Transmission Date: 20111222
  Serious: Yes (Hospitalization, Congenital Anomaly, Other)
  Sender: FDA-Public Use
  Company Number: FR-ABBOTT-11P-056-0842103-00

PATIENT

DRUGS (8)
  1. ACETAMINOPHEN [Suspect]
     Indication: MATERNAL EXPOSURE DURING PREGNANCY
     Route: 064
  2. TAMIFLU [Suspect]
     Indication: MATERNAL EXPOSURE DURING PREGNANCY
     Route: 064
  3. UVEDOSE [Suspect]
     Indication: MATERNAL EXPOSURE DURING PREGNANCY
     Route: 064
  4. PROGESTERONE [Suspect]
     Indication: MATERNAL EXPOSURE DURING PREGNANCY
     Route: 064
  5. TIMOFEROL [Suspect]
     Indication: MATERNAL EXPOSURE DURING PREGNANCY
     Route: 064
  6. VOGALENE [Suspect]
     Indication: MATERNAL EXPOSURE DURING PREGNANCY
     Route: 064
  7. ALBUTEROL [Suspect]
     Indication: MATERNAL EXPOSURE DURING PREGNANCY
     Route: 064
  8. MONAZOL [Suspect]
     Indication: MATERNAL EXPOSURE DURING PREGNANCY
     Route: 064

REACTIONS (4)
  - UMBILICAL CORD AROUND NECK [None]
  - MATERNAL EXPOSURE DURING PREGNANCY [None]
  - NEONATAL ASPHYXIA [None]
  - FACE PRESENTATION [None]
